FAERS Safety Report 12237318 (Version 2)
Quarter: 2016Q2

REPORT INFORMATION
  Report Type: Spontaneous
  Country: BR (occurrence: BR)
  Receive Date: 20160405
  Receipt Date: 20160418
  Transmission Date: 20160815
  Serious: Yes (Hospitalization, Other)
  Sender: FDA-Public Use
  Company Number: BR-ALEXION PHARMACEUTICALS INC-A201505587

PATIENT
  Age: 57 Year
  Sex: Female

DRUGS (3)
  1. SOLIRIS [Suspect]
     Active Substance: ECULIZUMAB
     Indication: HAEMOLYTIC URAEMIC SYNDROME
     Dosage: 900 MG, UNK
     Route: 042
     Dates: start: 20150801
  2. SOLIRIS [Suspect]
     Active Substance: ECULIZUMAB
     Dosage: UNK
     Route: 042
     Dates: start: 201602, end: 201603
  3. SOLIRIS [Suspect]
     Active Substance: ECULIZUMAB
     Dosage: UNK
     Route: 042
     Dates: end: 20160406

REACTIONS (10)
  - Sepsis [Unknown]
  - Fracture [Unknown]
  - Condition aggravated [Unknown]
  - Diabetic nephropathy [Unknown]
  - Haemolytic uraemic syndrome [Unknown]
  - Red blood cell schistocytes present [Unknown]
  - Respiratory tract infection [Unknown]
  - Haemolysis [Unknown]
  - Complement factor decreased [Unknown]
  - Blood lactate dehydrogenase increased [Unknown]

NARRATIVE: CASE EVENT DATE: 201509
